FAERS Safety Report 12808962 (Version 2)
Quarter: 2017Q3

REPORT INFORMATION
  Report Type: Spontaneous
  Country: IT (occurrence: IT)
  Receive Date: 20161004
  Receipt Date: 20170724
  Transmission Date: 20171127
  Serious: Yes (Other)
  Sender: FDA-Public Use
  Company Number: IT-PFIZER INC-2016450895

PATIENT
  Age: 57 Year
  Sex: Female
  Weight: 44 kg

DRUGS (3)
  1. LEDERFOLIN [Concomitant]
     Active Substance: LEUCOVORIN CALCIUM
     Indication: ADENOCARCINOMA OF COLON
     Dosage: 280 MG, UNK
     Route: 042
     Dates: start: 20160804, end: 20160818
  2. OXALIPLATIN. [Suspect]
     Active Substance: OXALIPLATIN
     Indication: ADENOCARCINOMA OF COLON
     Dosage: 119 MG, CYCLIC
     Route: 042
     Dates: start: 20160804
  3. AVASTIN [Concomitant]
     Active Substance: BEVACIZUMAB
     Indication: ADENOCARCINOMA OF COLON
     Dosage: 220 MG, UNK
     Route: 042
     Dates: start: 20160804, end: 20160818

REACTIONS (2)
  - Infusion related reaction [Recovering/Resolving]
  - Rash [Recovering/Resolving]

NARRATIVE: CASE EVENT DATE: 20160804
